FAERS Safety Report 8475794 (Version 3)
Quarter: 2012Q4

REPORT INFORMATION
  Report Type: 
  Country: JP (occurrence: JP)
  Receive Date: 20120326
  Receipt Date: 20121119
  Transmission Date: 20130627
  Serious: Yes (Disabling)
  Sender: FDA-Public Use
  Company Number: JP-ASTELLAS-2012US003014

PATIENT
  Age: 71 Year
  Sex: Female

DRUGS (11)
  1. TARCEVA [Suspect]
     Indication: LUNG ADENOCARCINOMA
     Dosage: 150 mg, UID/QD
     Route: 048
     Dates: start: 20111026, end: 20111112
  2. TARCEVA [Suspect]
     Dosage: 50 mg, UID/QD
     Route: 048
     Dates: start: 20111215, end: 20120201
  3. TARCEVA [Suspect]
     Dosage: 75 mg, UID/QD
     Route: 048
     Dates: start: 20120202, end: 20120313
  4. TARCEVA [Suspect]
     Dosage: 50 mg, UID/QD
     Route: 048
     Dates: start: 20120314, end: 20120401
  5. METHYCOBAL [Concomitant]
     Indication: NEUROPATHY PERIPHERAL
     Dosage: 500 mg, tid
     Route: 048
     Dates: start: 20110618
  6. LOXONIN [Concomitant]
     Indication: BACK PAIN
     Dosage: UNK
     Route: 062
     Dates: start: 20110618
  7. LYRICA [Concomitant]
     Indication: NEUROPATHY PERIPHERAL
     Dosage: 75 mg, bid
     Route: 048
     Dates: start: 20110628
  8. MYSLEE [Concomitant]
     Indication: INSOMNIA
     Dosage: 5 mg, UID/QD
     Route: 048
     Dates: start: 20110628
  9. LENDORMIN [Concomitant]
     Indication: INSOMNIA
     Dosage: 0.25 mg, UID/QD
     Route: 048
     Dates: start: 20110714
  10. WARFARIN [Concomitant]
     Indication: PULMONARY EMBOLISM
     Dosage: 2 mg, UID/QD
     Route: 048
     Dates: start: 20110921
  11. TAKEPRON [Concomitant]
     Indication: PRODUCT USED FOR UNKNOWN INDICATION
     Dosage: 30 mg, UID/QD
     Route: 048
     Dates: start: 20111117

REACTIONS (4)
  - Henoch-Schonlein purpura [Recovered/Resolved]
  - Back pain [Unknown]
  - Rash [Recovering/Resolving]
  - Diarrhoea [Recovering/Resolving]
